FAERS Safety Report 17514241 (Version 2)
Quarter: 2020Q1

REPORT INFORMATION
  Report Type: Spontaneous
  Country: NO (occurrence: NO)
  Receive Date: 20200309
  Receipt Date: 20200319
  Transmission Date: 20200409
  Serious: Yes (Hospitalization)
  Sender: FDA-Public Use
  Company Number: NO-NOVOPROD-714737

PATIENT
  Age: 56 Year
  Sex: Female

DRUGS (1)
  1. SAXENDA [Suspect]
     Active Substance: LIRAGLUTIDE
     Indication: OBESITY
     Dosage: 6 MG, QD
     Route: 058
     Dates: start: 20200210, end: 20200212

REACTIONS (4)
  - Rash pruritic [Recovered/Resolved]
  - Throat tightness [Recovered/Resolved]
  - Hypoaesthesia [Recovered/Resolved]
  - Urticaria [Recovered/Resolved]

NARRATIVE: CASE EVENT DATE: 20200212
